FAERS Safety Report 9997420 (Version 1)
Quarter: 2014Q1

REPORT INFORMATION
  Report Type: Spontaneous
  Country: US (occurrence: US)
  Receive Date: 20140311
  Receipt Date: 20140311
  Transmission Date: 20141002
  Serious: No
  Sender: FDA-Public Use
  Company Number: US-B.I. PHARMACEUTICALS,INC./RIDGEFIELD-2014-BI-09267BP

PATIENT
  Sex: Female
  Weight: 61 kg

DRUGS (9)
  1. PRADAXA [Suspect]
     Indication: ATRIAL FIBRILLATION
     Dosage: 150 MG
     Route: 048
     Dates: start: 2011
  2. IMDUR [Concomitant]
     Indication: ANGINA PECTORIS
     Dosage: 300 MG
     Route: 048
  3. LOPRESSOR [Concomitant]
     Indication: HYPERTENSION
     Dosage: 12.5 MG
     Route: 048
  4. DIGOXIN [Concomitant]
     Indication: CARDIAC FAILURE
     Dosage: 0.125 MG
     Route: 048
  5. PRILOSEC [Concomitant]
     Indication: DYSPEPSIA
     Dosage: 40 MG
     Route: 048
  6. LASIX [Concomitant]
     Indication: CARDIAC FAILURE
     Dosage: 80 MG
     Route: 048
  7. K-DUR ER [Concomitant]
     Dosage: 40 MEQ
     Route: 048
  8. PAXIL [Concomitant]
     Dosage: 12.5 MG
     Route: 048
  9. GABAPENTIN [Concomitant]
     Indication: NEUROPATHY PERIPHERAL
     Dosage: 1200 MG
     Route: 048

REACTIONS (1)
  - Arthritis [Not Recovered/Not Resolved]
